FAERS Safety Report 10329236 (Version 1)
Quarter: 2014Q3

REPORT INFORMATION
  Report Type: Spontaneous
  Country: US (occurrence: None)
  Receive Date: 20140718
  Receipt Date: 20140718
  Transmission Date: 20150326
  Serious: Yes (Hospitalization)
  Sender: FDA-Public Use
  Company Number: None

PATIENT
  Age: 1 Year
  Sex: Male
  Weight: 11 kg

DRUGS (5)
  1. DEXAMETHASONE. [Suspect]
     Active Substance: DEXAMETHASONE
  2. VINCRISTINE SULFATE. [Suspect]
     Active Substance: VINCRISTINE SULFATE
  3. CYTARABINE. [Suspect]
     Active Substance: CYTARABINE
  4. METHOTREXATE [Suspect]
     Active Substance: METHOTREXATE
  5. ONCASPAR [Suspect]
     Active Substance: PEGASPARGASE

REACTIONS (11)
  - Dehydration [None]
  - Neutrophil count decreased [None]
  - Bacterial test positive [None]
  - Enterococcus test positive [None]
  - Fungal test positive [None]
  - No therapeutic response [None]
  - Vomiting [None]
  - Infrequent bowel movements [None]
  - Haemoglobin decreased [None]
  - Gastrointestinal disorder [None]
  - Hypophagia [None]

NARRATIVE: CASE EVENT DATE: 20140715
